FAERS Safety Report 25231408 (Version 1)
Quarter: 2025Q2

REPORT INFORMATION
  Report Type: Spontaneous
  Country: FR (occurrence: FR)
  Receive Date: 20250423
  Receipt Date: 20250423
  Transmission Date: 20250717
  Serious: Yes (Other)
  Sender: AMGEN
  Company Number: None

PATIENT
  Age: 68 Year
  Sex: Female
  Weight: 62 kg

DRUGS (2)
  1. OTEZLA [Suspect]
     Active Substance: APREMILAST
     Indication: Behcet^s syndrome
     Dosage: 2 DOSAGE FORM, QD
     Route: 048
     Dates: start: 20240217, end: 20240416
  2. MORPHINE SULFATE [Concomitant]
     Active Substance: MORPHINE SULFATE

REACTIONS (3)
  - Asthenia [Not Recovered/Not Resolved]
  - Weight decreased [Not Recovered/Not Resolved]
  - Chest discomfort [Not Recovered/Not Resolved]

NARRATIVE: CASE EVENT DATE: 20240301
